FAERS Safety Report 9302151 (Version 2)
Quarter: 2013Q4

REPORT INFORMATION
  Report Type: Spontaneous
  Country: US (occurrence: US)
  Receive Date: 20130522
  Receipt Date: 20131108
  Transmission Date: 20140711
  Serious: Yes (Hospitalization)
  Sender: FDA-Public Use
  Company Number: US-B.I. PHARMACEUTICALS,INC./RIDGEFIELD-2013-BI-14227BP

PATIENT
  Age: 60 Year
  Sex: Male
  Weight: 120.2 kg

DRUGS (15)
  1. PRADAXA [Suspect]
     Indication: ANTICOAGULANT THERAPY
     Dosage: 300 MG
     Route: 048
     Dates: start: 20110713, end: 20120630
  2. PRADAXA [Suspect]
     Indication: PAROXYSMAL ARRHYTHMIA
  3. METOPROLOL [Concomitant]
     Dosage: 100 MG
  4. METFORMIN [Concomitant]
     Dosage: 2000 MG
  5. TRAMADOL [Concomitant]
     Dosage: 150 MG
  6. LEVOTHYROXINE [Concomitant]
     Dosage: 112 MCG
  7. DIGOXIN [Concomitant]
     Dosage: 0.25 MG
  8. LISINOPRIL [Concomitant]
     Dosage: 5 MG
  9. REGLAN [Concomitant]
     Dosage: 40 MG
  10. CRESTOR [Concomitant]
     Dosage: 10 MG
  11. OMEPRAZOLE [Concomitant]
     Dosage: 20 MG
  12. ASPIRIN [Concomitant]
     Dosage: 81 MG
  13. PROAIR [Concomitant]
     Route: 055
  14. ADVAIR [Concomitant]
     Route: 055
  15. GLIPIZIDE [Concomitant]
     Dosage: 10 MG

REACTIONS (2)
  - Gastrointestinal haemorrhage [Unknown]
  - Anaemia [Unknown]
